FAERS Safety Report 13885773 (Version 4)
Quarter: 2022Q3

REPORT INFORMATION
  Report Type: Report from Study
  Country: IT (occurrence: IT)
  Receive Date: 20170821
  Receipt Date: 20220923
  Transmission Date: 20221027
  Serious: Yes (Hospitalization)
  Sender: FDA-Public Use
  Company Number: None

PATIENT
  Age: 53 Year
  Sex: Female

DRUGS (6)
  1. MIRTAZAPINE [Suspect]
     Active Substance: MIRTAZAPINE
     Indication: Suicide attempt
     Route: 048
     Dates: start: 20170408, end: 20170408
  2. RISPERIDONE [Suspect]
     Active Substance: RISPERIDONE
     Indication: Suicide attempt
     Route: 048
     Dates: start: 20170408, end: 20170408
  3. TEGRETOL [Suspect]
     Active Substance: CARBAMAZEPINE
     Indication: Suicide attempt
     Route: 048
     Dates: start: 20170408, end: 20170408
  4. ZOLOFT [Suspect]
     Active Substance: SERTRALINE HYDROCHLORIDE
     Indication: Suicide attempt
     Route: 048
     Dates: start: 20170408, end: 20170408
  5. EN [Suspect]
     Active Substance: DELORAZEPAM
     Indication: Suicide attempt
     Route: 048
     Dates: start: 20170408, end: 20170408
  6. LYRICA [Suspect]
     Active Substance: PREGABALIN
     Indication: Suicide attempt
     Route: 048
     Dates: start: 20170408, end: 20170408

REACTIONS (6)
  - Coma [Unknown]
  - Intentional overdose [Unknown]
  - Suicide attempt [Unknown]
  - Drug abuse [Unknown]
  - Pharyngeal erythema [Unknown]
  - Toxicity to various agents [Unknown]

NARRATIVE: CASE EVENT DATE: 20170408
